FAERS Safety Report 9566025 (Version 2)
Quarter: 2014Q2

REPORT INFORMATION
  Report Type: Spontaneous
  Country: CA (occurrence: CA)
  Receive Date: 20130930
  Receipt Date: 20140624
  Transmission Date: 20141212
  Serious: Yes (Hospitalization, Disabling, Other)
  Sender: FDA-Public Use
  Company Number: CA-009507513-1309CAN013676

PATIENT
  Sex: Male

DRUGS (1)
  1. CORICIDIN II EXTRA STRENGTH COLD AND FLU [Suspect]
     Indication: NASOPHARYNGITIS
     Dosage: 2 DF, Q6H
     Route: 065
     Dates: start: 20110101

REACTIONS (5)
  - Pancreatitis [Recovered/Resolved]
  - Delirium [None]
  - Impaired work ability [None]
  - Pseudocyst [None]
  - Exercise tolerance decreased [None]
